FAERS Safety Report 4706671-4 (Version None)
Quarter: 2005Q3

REPORT INFORMATION
  Report Type: 
  Country: None (occurrence: None)
  Receive Date: 20050705
  Receipt Date: 20050629
  Transmission Date: 20060218
  Serious: Yes (Other)
  Sender: FDA-Public Use
  Company Number: NO-ROCHE-409307

PATIENT
  Age: 45 Year
  Sex: Female
  Weight: 99 kg

DRUGS (3)
  1. XENICAL [Suspect]
     Indication: OBESITY
     Route: 048
     Dates: start: 20030615, end: 20050615
  2. LEVAXIN [Concomitant]
     Route: 048
  3. ANTIDEPRESSANT NOS [Concomitant]
     Route: 048

REACTIONS (1)
  - HYPERTENSION [None]
